FAERS Safety Report 8153239-6 (Version None)
Quarter: 2012Q1

REPORT INFORMATION
  Report Type: 
  Country: None (occurrence: None)
  Receive Date: 20120221
  Receipt Date: 20120216
  Transmission Date: 20120608
  Serious: Yes (Hospitalization)
  Sender: FDA-Public Use
  Company Number: US-TEVA-2011006378

PATIENT
  Age: 46 Year
  Sex: Male

DRUGS (1)
  1. NUVIGIL [Suspect]
     Dosage: 150 MILLIGRAM; QAM
     Route: 048
     Dates: start: 20111220, end: 20111223

REACTIONS (1)
  - ANGIOEDEMA [None]
